FAERS Safety Report 10004920 (Version 1)
Quarter: 2014Q1

REPORT INFORMATION
  Report Type: Spontaneous
  Country: IT (occurrence: IT)
  Receive Date: 20140312
  Receipt Date: 20140312
  Transmission Date: 20141002
  Serious: Yes (Hospitalization)
  Sender: FDA-Public Use
  Company Number: IT-BAYER-2014-033605

PATIENT
  Age: 73 Year
  Sex: Female

DRUGS (3)
  1. CARDIOASPIRIN [Suspect]
     Indication: THROMBOSIS PROPHYLAXIS
     Dosage: DAILY DOSE 100 MG
     Route: 048
     Dates: start: 20130101, end: 20140131
  2. TOTALIP [Concomitant]
     Dosage: UNK
     Route: 048
  3. BLOPRESS [Concomitant]
     Dosage: UNK
     Route: 048

REACTIONS (4)
  - Apraxia [Unknown]
  - Cerebral haemorrhage [Unknown]
  - Subarachnoid haemorrhage [Unknown]
  - Confusional state [Unknown]
